FAERS Safety Report 10912293 (Version 6)
Quarter: 2016Q1

REPORT INFORMATION
  Report Type: Spontaneous
  Country: US (occurrence: US)
  Receive Date: 20150313
  Receipt Date: 20160219
  Transmission Date: 20160525
  Serious: Yes (Other)
  Sender: FDA-Public Use
  Company Number: US-PFIZER INC-2015086935

PATIENT
  Age: 57 Year
  Sex: Male
  Weight: 68.4 kg

DRUGS (5)
  1. VIAGRA [Suspect]
     Active Substance: SILDENAFIL CITRATE
     Dosage: 60 MG, UNK
  2. VIAGRA [Suspect]
     Active Substance: SILDENAFIL CITRATE
     Dosage: 100 MG, UNK
  3. VIAGRA [Suspect]
     Active Substance: SILDENAFIL CITRATE
     Dosage: 100 MG, UNK
  4. VIAGRA [Suspect]
     Active Substance: SILDENAFIL CITRATE
     Dosage: 50 MG, UNK
  5. VIAGRA [Suspect]
     Active Substance: SILDENAFIL CITRATE
     Indication: ERECTILE DYSFUNCTION
     Dosage: 50 MG, UNK

REACTIONS (13)
  - Pneumonia [Unknown]
  - Tooth disorder [Unknown]
  - Drug prescribing error [Unknown]
  - Drug ineffective [Unknown]
  - Sinus disorder [Not Recovered/Not Resolved]
  - Gingival pain [Unknown]
  - Pulmonary mass [Unknown]
  - Incorrect dose administered [Unknown]
  - Cataract [Unknown]
  - Drug dispensing error [Unknown]
  - Gingival recession [Unknown]
  - Intentional product use issue [Unknown]
  - Toothache [Unknown]

NARRATIVE: CASE EVENT DATE: 2014
